FAERS Safety Report 6992799-5 (Version None)
Quarter: 2010Q3

REPORT INFORMATION
  Report Type: 
  Country: None (occurrence: None)
  Receive Date: 20100917
  Receipt Date: 20100915
  Transmission Date: 20110219
  Serious: Yes (Other)
  Sender: FDA-Public Use
  Company Number: A0881289A

PATIENT
  Age: 62 Year
  Sex: Female

DRUGS (3)
  1. ADVAIR DISKUS 100/50 [Suspect]
     Indication: ASTHMA
     Route: 055
     Dates: start: 20010101
  2. ALBUTEROL [Concomitant]
  3. UNSPECIFIED TREATMENT [Concomitant]

REACTIONS (5)
  - APHASIA [None]
  - DYSPHONIA [None]
  - INCREASED UPPER AIRWAY SECRETION [None]
  - PHARYNGEAL DISORDER [None]
  - THROAT TIGHTNESS [None]
